FAERS Safety Report 5500627-X (Version None)
Quarter: 2007Q4

REPORT INFORMATION
  Report Type: 
  Country: None (occurrence: None)
  Receive Date: 20071018
  Receipt Date: 20061211
  Transmission Date: 20080405
  Serious: Yes (Other)
  Sender: FDA-Public Use
  Company Number: 2006152850

PATIENT
  Sex: Female

DRUGS (3)
  1. NEURONTIN [Suspect]
     Indication: NEURALGIA
     Dosage: 900 MG (300MG IN THE MORNING + 600MG AT BEDTIME)
  2. LEVOTHYROXINE SODIUM [Concomitant]
  3. MULTI-VITAMINS [Concomitant]

REACTIONS (4)
  - AGITATION [None]
  - MEMORY IMPAIRMENT [None]
  - RASH [None]
  - THINKING ABNORMAL [None]
